FAERS Safety Report 4332221-0 (Version None)
Quarter: 2004Q1

REPORT INFORMATION
  Report Type: 
  Country: None (occurrence: None)
  Receive Date: 20040329
  Receipt Date: 20040206
  Transmission Date: 20041129
  Serious: Yes (Hospitalization)
  Sender: FDA-Public Use
  Company Number: 1558

PATIENT
  Sex: Male

DRUGS (2)
  1. AVINZA [Suspect]
     Indication: ARTHRITIS
  2. HYDROCODONE/ACETAMINOPHEN [Concomitant]

REACTIONS (3)
  - ENCEPHALOPATHY [None]
  - LOSS OF CONSCIOUSNESS [None]
  - RESPIRATORY DEPRESSION [None]
